FAERS Safety Report 22299071 (Version 6)
Quarter: 2024Q2

REPORT INFORMATION
  Report Type: Spontaneous
  Country: US (occurrence: US)
  Receive Date: 20230509
  Receipt Date: 20240508
  Transmission Date: 20240715
  Serious: Yes (Disabling, Other)
  Sender: FDA-Public Use
  Company Number: US-HORIZON THERAPEUTICS-HZN-2023-003379

PATIENT

DRUGS (45)
  1. TEPEZZA [Suspect]
     Active Substance: TEPROTUMUMAB-TRBW
     Indication: Endocrine ophthalmopathy
     Dosage: 748 MG, FIRST INFUSION
     Route: 042
     Dates: start: 202209
  2. TEPEZZA [Suspect]
     Active Substance: TEPROTUMUMAB-TRBW
     Indication: Graves^ disease
     Dosage: SECOND INFUSION
     Route: 042
  3. TEPEZZA [Suspect]
     Active Substance: TEPROTUMUMAB-TRBW
     Dosage: 1380 MG, EVERY 3 WEEKS, THIRD INFUSION
     Route: 042
     Dates: start: 20221123
  4. TEPEZZA [Suspect]
     Active Substance: TEPROTUMUMAB-TRBW
     Dosage: 1400 MG, EVERY 3 WEEKS, FOURTH INFUSION
     Route: 042
     Dates: start: 20221214
  5. TEPEZZA [Suspect]
     Active Substance: TEPROTUMUMAB-TRBW
     Dosage: 1420 MG, EVERY 3 WEEKS, FIFTH INFUSION
     Route: 042
     Dates: start: 20230105
  6. TEPEZZA [Suspect]
     Active Substance: TEPROTUMUMAB-TRBW
     Dosage: 1420 MG, EVERY 3 WEEKS, SIXTH INFUSION
     Route: 042
     Dates: start: 20230126
  7. TEPEZZA [Suspect]
     Active Substance: TEPROTUMUMAB-TRBW
     Dosage: 1400 MG, EVERY 3 WEEKS, SEVENTH INFUSION
     Route: 042
     Dates: start: 20230216
  8. TEPEZZA [Suspect]
     Active Substance: TEPROTUMUMAB-TRBW
     Dosage: 1380 MG, EVERY 3 WEEKS, EIGHTH INFUSION
     Route: 042
     Dates: start: 20230309, end: 20230309
  9. TAPAZOLE [Suspect]
     Active Substance: METHIMAZOLE
  10. ASPIRIN [Concomitant]
     Active Substance: ASPIRIN
  11. LEVOTHYROXINE [Concomitant]
     Active Substance: LEVOTHYROXINE\LEVOTHYROXINE SODIUM
  12. Metforminum [Concomitant]
  13. ZANTAC [Concomitant]
     Active Substance: RANITIDINE HYDROCHLORIDE
  14. WELLBUTRIN [Concomitant]
     Active Substance: BUPROPION HYDROCHLORIDE
  15. SYNTHROID [Concomitant]
     Active Substance: LEVOTHYROXINE SODIUM
     Dosage: UNK UNK, QD
  16. METOPROLOL [Concomitant]
     Active Substance: METOPROLOL
  17. ELAVIL [Concomitant]
     Active Substance: AMITRIPTYLINE HYDROCHLORIDE
  18. NORCO [Concomitant]
     Active Substance: ACETAMINOPHEN\HYDROCODONE BITARTRATE
     Dosage: UNK UNK, BID
  19. LORATADINE 1A PHARMA [Concomitant]
  20. VITAMIN D3 [Concomitant]
     Active Substance: CHOLECALCIFEROL
     Dosage: UNK UNK, QD
  21. AMLODIPINE [Concomitant]
     Active Substance: AMLODIPINE BESYLATE
  22. ATORVASTATIN [Concomitant]
     Active Substance: ATORVASTATIN
  23. AZITHROMYCIN [Concomitant]
     Active Substance: AZITHROMYCIN
  24. CARVEDILOL [Concomitant]
     Active Substance: CARVEDILOL
  25. DOXYCYCLINE HYCLATE [Concomitant]
     Active Substance: DOXYCYCLINE HYCLATE
  26. FAMOTIDINE [Concomitant]
     Active Substance: FAMOTIDINE
     Dosage: UNK, BID
     Route: 048
  27. FLEXERIL [Concomitant]
     Active Substance: CYCLOBENZAPRINE HYDROCHLORIDE
  28. FLUTICASONE PROPIONATE [Concomitant]
     Active Substance: FLUTICASONE PROPIONATE
  29. FUROSEMIDE [Concomitant]
     Active Substance: FUROSEMIDE
  30. HYDROCORTISONE PROBUTATE [Concomitant]
     Active Substance: HYDROCORTISONE PROBUTATE
  31. KETOROLAC [Concomitant]
     Active Substance: KETOROLAC TROMETHAMINE
  32. LOSARTAN [Concomitant]
     Active Substance: LOSARTAN
  33. NAPROXEN [Concomitant]
     Active Substance: NAPROXEN
  34. Neomycin- polymyxin- dexameth [Concomitant]
  35. OFLOXACIN [Concomitant]
     Active Substance: OFLOXACIN
  36. OMEPRAZOLE [Concomitant]
     Active Substance: DONEPEZIL HYDROCHLORIDE\OMEPRAZOLE\OMEPRAZOLE MAGNESIUM
  37. POTASSIUM CHLORIDE [Concomitant]
     Active Substance: POTASSIUM CHLORIDE
  38. PREDNISOLONE ACETATE [Concomitant]
     Active Substance: PREDNISOLONE ACETATE
  39. SIMETHICONE (DIMETHICONE) [Concomitant]
     Active Substance: DIMETHICONE
  40. TRAMADOL [Concomitant]
     Active Substance: TRAMADOL\TRAMADOL HYDROCHLORIDE
  41. TRINTELLIX [Concomitant]
     Active Substance: VORTIOXETINE HYDROBROMIDE
  42. URSODIOL [Concomitant]
     Active Substance: URSODIOL
  43. DIPHENHYDRAMINE [Concomitant]
     Active Substance: DIPHENHYDRAMINE
     Route: 042
  44. Solu- Medrol [Concomitant]
     Route: 042
  45. EPINEPHRINE [Concomitant]
     Active Substance: EPINEPHRINE

REACTIONS (24)
  - Physical disability [Not Recovered/Not Resolved]
  - Disability [Not Recovered/Not Resolved]
  - Deafness permanent [Not Recovered/Not Resolved]
  - Pain [Not Recovered/Not Resolved]
  - Injury [Not Recovered/Not Resolved]
  - Anxiety [Not Recovered/Not Resolved]
  - Concomitant disease aggravated [Not Recovered/Not Resolved]
  - Discomfort [Not Recovered/Not Resolved]
  - Impaired quality of life [Not Recovered/Not Resolved]
  - Emotional distress [Not Recovered/Not Resolved]
  - Therapy change [Unknown]
  - Diabetes mellitus [Unknown]
  - Tinnitus [Not Recovered/Not Resolved]
  - Headache [Unknown]
  - Acute sinusitis [Unknown]
  - Pain in extremity [Unknown]
  - Influenza [Unknown]
  - Bronchitis [Unknown]
  - Weight decreased [Unknown]
  - Muscle spasms [Unknown]
  - Lacrimation increased [Unknown]
  - Vitreous floaters [Unknown]
  - Economic problem [Not Recovered/Not Resolved]
  - Product quality issue [Unknown]

NARRATIVE: CASE EVENT DATE: 20230101
